FAERS Safety Report 15896226 (Version 12)
Quarter: 2019Q2

REPORT INFORMATION
  Report Type: Report from Study
  Country: BE (occurrence: BE)
  Receive Date: 20190131
  Receipt Date: 20190610
  Transmission Date: 20190711
  Serious: Yes (Hospitalization)
  Sender: FDA-Public Use
  Company Number: BE-ROCHE-2249338

PATIENT
  Age: 67 Year
  Sex: Male
  Weight: 63.2 kg

DRUGS (38)
  1. RO7082859 (CD20/C3 T-CELL BISPECIFIC MAB) [Suspect]
     Active Substance: RO-7082859
     Dosage: START TIME OF FIRST DOSE ON 17/JAN/2019 AT 15:03?DATE OF MOST RECENT DOSE ON 17/JAN/2019 AT 19:05?DA
     Route: 042
     Dates: start: 20190117, end: 20190117
  2. PROMAGNOR [Concomitant]
     Active Substance: MAGNESIUM
     Indication: HYPOMAGNESAEMIA
     Route: 065
     Dates: start: 20190510
  3. FOLAVIT [Concomitant]
     Active Substance: FOLIC ACID
     Route: 065
     Dates: start: 20190124
  4. BACTRIM [Concomitant]
     Active Substance: SULFAMETHOXAZOLE\TRIMETHOPRIM
     Indication: INFECTION PROPHYLAXIS
     Route: 065
     Dates: start: 20180601, end: 20190104
  5. OMEPRAZOLE. [Concomitant]
     Active Substance: OMEPRAZOLE
     Route: 065
     Dates: start: 20190103, end: 20190103
  6. RO7082859 (CD20/C3 T-CELL BISPECIFIC MAB) [Suspect]
     Active Substance: RO-7082859
     Indication: B-CELL LYMPHOMA
     Dosage: MOST RECENT DOSE AT 16.54?MOST RECENT DOSE: 15/FEB/2019 AT 14:41?DATE OF MOST RECENT DOSE OF RO70828
     Route: 042
     Dates: start: 20181226
  7. PANTOMED [PANTOPRAZOLE SODIUM SESQUIHYDRATE] [Concomitant]
     Route: 065
     Dates: start: 20190124, end: 20190215
  8. PANTOMED [PANTOPRAZOLE SODIUM SESQUIHYDRATE] [Concomitant]
     Route: 065
     Dates: start: 20190312, end: 20190329
  9. PANTOMED [PANTOPRAZOLE SODIUM SESQUIHYDRATE] [Concomitant]
     Route: 065
     Dates: start: 20181220, end: 20181226
  10. TEVAGRASTIM [Concomitant]
     Active Substance: FILGRASTIM
     Route: 065
     Dates: start: 20190216, end: 20190223
  11. ALLOPURINOL. [Concomitant]
     Active Substance: ALLOPURINOL
     Indication: TUMOUR LYSIS SYNDROME
     Route: 065
     Dates: start: 20131115
  12. PLATELETS [Concomitant]
     Active Substance: HUMAN PLATELET, ALLOGENIC
     Route: 065
     Dates: start: 20190218, end: 20190218
  13. ERYTHROCYTES [Concomitant]
     Active Substance: HUMAN RED BLOOD CELL
     Indication: ANAEMIA
     Route: 065
     Dates: start: 20190119, end: 20190119
  14. URSOFALK [Concomitant]
     Active Substance: URSODIOL
     Route: 065
     Dates: start: 20190308
  15. FOLAVIT [Concomitant]
     Active Substance: FOLIC ACID
     Indication: FOLATE DEFICIENCY
     Route: 065
     Dates: start: 20170405, end: 20190102
  16. OMEPRAZOLE. [Concomitant]
     Active Substance: OMEPRAZOLE
     Route: 065
     Dates: start: 20190216, end: 20190224
  17. OMEPRAZOLE. [Concomitant]
     Active Substance: OMEPRAZOLE
     Route: 065
     Dates: start: 20190330, end: 20190402
  18. ATEZOLIZUMAB. [Suspect]
     Active Substance: ATEZOLIZUMAB
     Indication: B-CELL LYMPHOMA
     Dosage: MOST RECENT DOSE: 15/FEB/2019 AT 12:46.?07/MAR/2019, AT 14:20 HE RECEIVED INTRAVENOUS ATEZOLIZUMAB 1
     Route: 042
     Dates: start: 20190117
  19. ACICLOVIR [Concomitant]
     Active Substance: ACYCLOVIR
     Indication: HERPES ZOSTER
     Route: 065
     Dates: start: 20130314
  20. PLATELETS [Concomitant]
     Active Substance: HUMAN PLATELET, ALLOGENIC
     Route: 065
     Dates: start: 20181203, end: 20181203
  21. PANTOMED [PANTOPRAZOLE SODIUM SESQUIHYDRATE] [Concomitant]
     Route: 065
     Dates: start: 20190225, end: 20190307
  22. PANTOMED [PANTOPRAZOLE SODIUM SESQUIHYDRATE] [Concomitant]
     Route: 065
     Dates: start: 20181231, end: 20190102
  23. PANTOMED [PANTOPRAZOLE SODIUM SESQUIHYDRATE] [Concomitant]
     Route: 065
     Dates: start: 20190104, end: 20190117
  24. LASIX [Concomitant]
     Active Substance: FUROSEMIDE
     Route: 065
     Dates: start: 20190219, end: 20190219
  25. OMEPRAZOLE. [Concomitant]
     Active Substance: OMEPRAZOLE
     Route: 065
     Dates: start: 20190118, end: 20190123
  26. HIZENTRA [Concomitant]
     Active Substance: HUMAN IMMUNOGLOBULIN G
     Indication: HYPOGAMMAGLOBULINAEMIA
     Route: 065
     Dates: start: 20101020
  27. LORMETAZEPAM [Concomitant]
     Active Substance: LORMETAZEPAM
     Indication: INSOMNIA
     Route: 065
     Dates: start: 2009
  28. PANTOMED [PANTOPRAZOLE SODIUM SESQUIHYDRATE] [Concomitant]
     Indication: GASTROOESOPHAGEAL REFLUX DISEASE
     Route: 065
     Dates: start: 20121213, end: 20181218
  29. ULTRA K [Concomitant]
     Route: 065
     Dates: start: 20180326
  30. OMEPRAZOLE. [Concomitant]
     Active Substance: OMEPRAZOLE
     Route: 065
     Dates: start: 20181227, end: 20181230
  31. OBINUTUZUMAB. [Suspect]
     Active Substance: OBINUTUZUMAB
     Indication: B-CELL LYMPHOMA
     Dosage: AT 14.30? DATE OF MOST RECENT DOSE 18/DEC/2019?DATE OF MOST RECENT DOSE OF OBINUTUZUMAB PRIOR TO 4 T
     Route: 042
     Dates: start: 20181218
  32. PLATELETS [Concomitant]
     Active Substance: HUMAN PLATELET, ALLOGENIC
     Indication: THROMBOCYTOPENIA
     Route: 065
     Dates: start: 20181121, end: 20181121
  33. FLUCONAZOLE. [Concomitant]
     Active Substance: FLUCONAZOLE
     Route: 065
     Dates: start: 20181204, end: 20190102
  34. PANTOMED [PANTOPRAZOLE SODIUM SESQUIHYDRATE] [Concomitant]
     Route: 065
     Dates: start: 20190403
  35. BISOPROLOL [Concomitant]
     Active Substance: BISOPROLOL
     Indication: HYPERTENSION
     Route: 065
     Dates: start: 20180621
  36. OMEPRAZOLE. [Concomitant]
     Active Substance: OMEPRAZOLE
     Indication: PROPHYLAXIS AGAINST GASTROINTESTINAL ULCER
     Route: 065
     Dates: start: 20181219, end: 20181219
  37. OMEPRAZOLE. [Concomitant]
     Active Substance: OMEPRAZOLE
     Route: 065
     Dates: start: 20190308, end: 20190311
  38. NESIVINE [Concomitant]
     Indication: CHRONIC SINUSITIS
     Route: 065
     Dates: start: 20190308, end: 20190417

REACTIONS (4)
  - Cytokine release syndrome [Recovered/Resolved]
  - Device related infection [Recovered/Resolved]
  - Acute kidney injury [Recovered/Resolved]
  - Cytokine release syndrome [Recovered/Resolved]

NARRATIVE: CASE EVENT DATE: 20181227
